FAERS Safety Report 25884252 (Version 1)
Quarter: 2025Q4

REPORT INFORMATION
  Report Type: Spontaneous
  Country: GB (occurrence: GB)
  Receive Date: 20251006
  Receipt Date: 20251006
  Transmission Date: 20260117
  Serious: Yes (Other)
  Sender: REGENERON
  Company Number: GB-SA-2025SA293336

PATIENT
  Age: 82 Year
  Sex: Female

DRUGS (1)
  1. PRALUENT [Suspect]
     Active Substance: ALIROCUMAB
     Indication: Hypercholesterolaemia
     Dosage: 75 MG, SOLUTION FOR INJECTION

REACTIONS (1)
  - Cerebrovascular accident [Unknown]
